FAERS Safety Report 8831599 (Version 2)
Quarter: 2012Q4

REPORT INFORMATION
  Report Type: 
  Country: FR (occurrence: FR)
  Receive Date: 20121009
  Receipt Date: 20121026
  Transmission Date: 20130627
  Serious: Yes (Death, Hospitalization)
  Sender: FDA-Public Use
  Company Number: FR-B.I. PHARMACEUTICALS,INC./RIDGEFIELD-2012-FF-01419FF

PATIENT
  Age: 88 Year
  Sex: Male

DRUGS (6)
  1. PRADAXA [Suspect]
     Indication: ATRIAL FIBRILLATION
     Dosage: 220 mg
     Route: 048
  2. KARDEGIC [Concomitant]
  3. TRIATEC [Concomitant]
  4. ZELITREX [Concomitant]
  5. TAHOR [Concomitant]
  6. ATENOLOL [Concomitant]

REACTIONS (2)
  - Subdural haematoma [Fatal]
  - Fall [Unknown]
